FAERS Safety Report 4821191-4 (Version None)
Quarter: 2005Q4

REPORT INFORMATION
  Report Type: 
  Country: None (occurrence: None)
  Receive Date: 20051103
  Receipt Date: 20051019
  Transmission Date: 20060501
  Serious: Yes (Hospitalization, Other)
  Sender: FDA-Public Use
  Company Number: USA0509107538

PATIENT
  Age: 82 Year
  Sex: Female
  Weight: 65 kg

DRUGS (8)
  1. FORTEO [Suspect]
     Indication: OSTEOPOROSIS
     Dosage: 20 UG DAY
     Dates: start: 20050701
  2. DITROPAN XL [Concomitant]
  3. DILTIAZEM HCL [Concomitant]
  4. COUMADIN [Concomitant]
  5. TOPROL-XL [Concomitant]
  6. PROTONIX [Concomitant]
  7. SYNTHROID [Concomitant]
  8. LISINOPRIL [Concomitant]

REACTIONS (7)
  - ASTHENIA [None]
  - DRUG EFFECT DECREASED [None]
  - FALL [None]
  - FEELING ABNORMAL [None]
  - PYELONEPHRITIS [None]
  - URINARY INCONTINENCE [None]
  - URINARY TRACT INFECTION [None]
